FAERS Safety Report 4382121-5 (Version None)
Quarter: 2004Q2

REPORT INFORMATION
  Report Type: 
  Country: None (occurrence: None)
  Receive Date: 20040603
  Receipt Date: 20031010
  Transmission Date: 20050107
  Serious: Yes (Hospitalization)
  Sender: FDA-Public Use
  Company Number: 200222052US

PATIENT
  Sex: Male

DRUGS (1)
  1. LOVENOX [Suspect]

REACTIONS (1)
  - HAEMORRHAGE SUBCUTANEOUS [None]
